FAERS Safety Report 9149246 (Version 5)
Quarter: 2013Q2

REPORT INFORMATION
  Report Type: Spontaneous
  Country: US (occurrence: US)
  Receive Date: 20130308
  Receipt Date: 20130605
  Transmission Date: 20140414
  Serious: No
  Sender: FDA-Public Use
  Company Number: US-PFIZER INC-2013077637

PATIENT
  Age: 84 Year
  Sex: Female

DRUGS (4)
  1. XALKORI [Suspect]
     Indication: LARYNGEAL CANCER
     Dosage: 250 MG, 2X/DAY
     Route: 048
     Dates: start: 20121215, end: 20130220
  2. XALKORI [Suspect]
     Dosage: UNK
     Route: 048
     Dates: start: 20130105, end: 20130228
  3. XALKORI [Suspect]
     Dosage: UNK
     Route: 048
     Dates: start: 20130311
  4. CARBOPLATIN [Concomitant]
     Dosage: UNK
     Dates: start: 20130326

REACTIONS (3)
  - Off label use [Unknown]
  - Disease progression [Unknown]
  - Laryngeal cancer [Unknown]
